FAERS Safety Report 6999833-7 (Version None)
Quarter: 2010Q3

REPORT INFORMATION
  Report Type: 
  Country: None (occurrence: None)
  Receive Date: 20100920
  Receipt Date: 20100701
  Transmission Date: 20110219
  Serious: No
  Sender: FDA-Public Use
  Company Number: US-ASTRAZENECA-2007UW25216

PATIENT
  Age: 38 Year
  Sex: Male
  Weight: 80.7 kg

DRUGS (22)
  1. SEROQUEL [Suspect]
     Indication: ANXIETY
     Route: 048
     Dates: start: 19970901
  2. SEROQUEL [Suspect]
     Indication: BIPOLAR DISORDER
     Route: 048
     Dates: start: 19970901
  3. SEROQUEL [Suspect]
     Indication: SCHIZOPHRENIA
     Route: 048
     Dates: start: 19970901
  4. SEROQUEL [Suspect]
     Dosage: 25 MG - 400 MG
     Route: 048
     Dates: start: 20020814
  5. SEROQUEL [Suspect]
     Dosage: 25 MG - 400 MG
     Route: 048
     Dates: start: 20020814
  6. SEROQUEL [Suspect]
     Dosage: 25 MG - 400 MG
     Route: 048
     Dates: start: 20020814
  7. VISTARIL [Concomitant]
  8. TRILEPTAL [Concomitant]
  9. COGENTINE [Concomitant]
     Dosage: 1 MG - 200 MG
  10. TRAZODONE HCL [Concomitant]
  11. PREVACID [Concomitant]
     Route: 048
  12. FAMVIR [Concomitant]
  13. LEVITRA [Concomitant]
     Route: 048
  14. LIPITOR [Concomitant]
     Route: 048
  15. LISINOPRIL [Concomitant]
     Route: 048
  16. BUSPIRONE HCL [Concomitant]
     Route: 048
  17. GABAPENTIN [Concomitant]
     Route: 048
  18. MIRTAZAPINE [Concomitant]
     Route: 048
  19. THEOPHYLLINE [Concomitant]
  20. ZYPREXA [Concomitant]
     Indication: BIPOLAR DISORDER
     Dates: start: 20040101
  21. ZYPREXA [Concomitant]
     Indication: SCHIZOPHRENIA
     Dates: start: 20040101
  22. HALDOL [Concomitant]
     Dates: start: 20060101, end: 20071001

REACTIONS (6)
  - BLOOD CHOLESTEROL INCREASED [None]
  - DIABETES MELLITUS [None]
  - DIABETES MELLITUS INADEQUATE CONTROL [None]
  - DIABETIC COMPLICATION [None]
  - HYPERGLYCAEMIA [None]
  - HYPERLIPIDAEMIA [None]
